FAERS Safety Report 18888913 (Version 2)
Quarter: 2021Q1

REPORT INFORMATION
  Report Type: Spontaneous
  Country: US (occurrence: US)
  Receive Date: 20210212
  Receipt Date: 20210222
  Transmission Date: 20210420
  Serious: No
  Sender: FDA-Public Use
  Company Number: US-FRESENIUS KABI-FK202101449

PATIENT
  Age: 30 Year
  Weight: 129.8 kg

DRUGS (3)
  1. LIDOCAINE HYDROCHLORIDE INJECTION, USP [Suspect]
     Active Substance: LIDOCAINE HYDROCHLORIDE
     Indication: INFILTRATION ANAESTHESIA
     Route: 065
     Dates: start: 20210130, end: 20210130
  2. WATER FOR INJECTION [Concomitant]
     Active Substance: WATER
     Indication: WOUND TREATMENT
     Route: 065
     Dates: start: 20210130, end: 20210130
  3. CHLORHEXIDINE GLUCONATE. [Concomitant]
     Active Substance: CHLORHEXIDINE GLUCONATE
     Indication: WOUND TREATMENT
     Route: 065
     Dates: start: 20210130, end: 20210130

REACTIONS (1)
  - Therapeutic product effect decreased [Unknown]

NARRATIVE: CASE EVENT DATE: 20210130
